FAERS Safety Report 4422687-X (Version None)
Quarter: 2004Q3

REPORT INFORMATION
  Report Type: 
  Country: None (occurrence: None)
  Receive Date: 20040713
  Receipt Date: 20030715
  Transmission Date: 20050211
  Serious: No
  Sender: FDA-Public Use
  Company Number: PHEH2003US06083

PATIENT
  Age: 40 Year
  Sex: Female

DRUGS (6)
  1. ELIDEL [Suspect]
     Indication: ECZEMA
     Dosage: BID, TOPICAL
     Route: 061
     Dates: start: 20030601
  2. ADVAIR(SALMETEROL XINAFOATE) [Concomitant]
  3. RHINOCORT [Concomitant]
  4. SYNTHROID [Concomitant]
  5. MULTIVITAMIN [Concomitant]
  6. ZYRTEC [Concomitant]

REACTIONS (1)
  - OEDEMA PERIPHERAL [None]
